FAERS Safety Report 19523233 (Version 1)
Quarter: 2021Q3

REPORT INFORMATION
  Report Type: Report from Study
  Country: MX (occurrence: MX)
  Receive Date: 20210712
  Receipt Date: 20210712
  Transmission Date: 20211014
  Serious: Yes (Other)
  Sender: FDA-Public Use
  Company Number: MX-INCYTE CORPORATION-2021IN006074

PATIENT

DRUGS (1)
  1. JAKAVI [Suspect]
     Active Substance: RUXOLITINIB
     Indication: MYELOFIBROSIS
     Dosage: 1 DF, BID
     Route: 048
     Dates: start: 2013

REACTIONS (11)
  - Pain in extremity [Not Recovered/Not Resolved]
  - Weight decreased [Unknown]
  - Accident [Unknown]
  - Depression [Unknown]
  - Tension [Recovering/Resolving]
  - Renal impairment [Recovering/Resolving]
  - Skin disorder [Recovering/Resolving]
  - Malaise [Unknown]
  - Decreased appetite [Unknown]
  - Foot deformity [Not Recovered/Not Resolved]
  - Gait disturbance [Unknown]
